FAERS Safety Report 5067936-2 (Version None)
Quarter: 2006Q3

REPORT INFORMATION
  Report Type: 
  Country: None (occurrence: None)
  Receive Date: 20060802
  Receipt Date: 20060721
  Transmission Date: 20061208
  Serious: Yes (Other)
  Sender: FDA-Public Use
  Company Number: US-AVENTIS-200616302US

PATIENT
  Age: 37 Year
  Sex: Female

DRUGS (4)
  1. KETEK [Suspect]
     Indication: SINUSITIS
     Route: 048
     Dates: start: 20060717, end: 20060717
  2. SYNTHROID [Concomitant]
     Dosage: DOSE: UNKNOWN
  3. ACETAMINOPHEN [Concomitant]
     Indication: PYREXIA
     Dosage: DOSE: UNKNOWN
     Dates: end: 20060719
  4. ACETAMINOPHEN [Concomitant]
     Indication: ARTHRALGIA
     Dosage: DOSE: UNKNOWN
     Dates: end: 20060719

REACTIONS (8)
  - ALANINE AMINOTRANSFERASE INCREASED [None]
  - ARTHRALGIA [None]
  - ASPARTATE AMINOTRANSFERASE INCREASED [None]
  - BLOOD ALKALINE PHOSPHATASE INCREASED [None]
  - LIVER FUNCTION TEST ABNORMAL [None]
  - NAUSEA [None]
  - PYREXIA [None]
  - RASH [None]
